FAERS Safety Report 21178212 (Version 1)
Quarter: 2022Q3

REPORT INFORMATION
  Report Type: Spontaneous
  Country: RU (occurrence: RU)
  Receive Date: 20220805
  Receipt Date: 20220805
  Transmission Date: 20221027
  Serious: Yes (Congenital Anomaly, Other)
  Sender: FDA-Public Use
  Company Number: RU-FreseniusKabi-FK202210586

PATIENT
  Sex: Male
  Weight: 970 kg

DRUGS (2)
  1. CARBOPLATIN [Suspect]
     Active Substance: CARBOPLATIN
     Indication: Product used for unknown indication
  2. PACLITAXEL [Suspect]
     Active Substance: PACLITAXEL
     Indication: Product used for unknown indication

REACTIONS (12)
  - Premature baby [Unknown]
  - Underweight [Unknown]
  - Neonatal respiratory distress syndrome [Unknown]
  - Bronchopulmonary dysplasia [Unknown]
  - Jaundice neonatal [Unknown]
  - Anaemia [Unknown]
  - Heart disease congenital [Unknown]
  - Intraventricular haemorrhage [Unknown]
  - Congenital hypothyroidism [Unknown]
  - Retinopathy of prematurity [Unknown]
  - Hydrocele [Unknown]
  - Foetal exposure during pregnancy [Unknown]
